FAERS Safety Report 23841362 (Version 1)
Quarter: 2024Q2

REPORT INFORMATION
  Report Type: Spontaneous
  Country: PT (occurrence: PT)
  Receive Date: 20240510
  Receipt Date: 20240510
  Transmission Date: 20240716
  Serious: Yes (Other)
  Sender: FDA-Public Use
  Company Number: None

PATIENT
  Age: 62 Year
  Sex: Male

DRUGS (2)
  1. Electr?litos + Glucose [Concomitant]
     Indication: Product used for unknown indication
     Route: 042
  2. PANTOPRAZOLE SODIUM [Suspect]
     Active Substance: PANTOPRAZOLE SODIUM
     Indication: Prophylaxis against gastrointestinal ulcer
     Dosage: TOMA ?NICA
     Route: 042
     Dates: start: 20230604, end: 20230604

REACTIONS (4)
  - Oedema mouth [Recovered/Resolved]
  - Hypotension [Recovered/Resolved]
  - Pruritus [Recovered/Resolved]
  - Abdominal pain upper [Recovered/Resolved]

NARRATIVE: CASE EVENT DATE: 20230604
